FAERS Safety Report 6238833-1 (Version None)
Quarter: 2009Q2

REPORT INFORMATION
  Report Type: 
  Country: None (occurrence: None)
  Receive Date: 20090617
  Receipt Date: 20090617
  Transmission Date: 20091009
  Serious: Yes (Life-Threatening, Hospitalization, Other)
  Sender: FDA-Public Use
  Company Number: None

PATIENT
  Age: 47 Year
  Sex: Female
  Weight: 54.4316 kg

DRUGS (2)
  1. CATAPRESS BP PATCH [Suspect]
     Indication: GLOMERULONEPHRITIS
     Dosage: 1 PATCH 1 TIME TOP 1 TIME IN JUNE 03
     Route: 061
  2. CATAPRESS BP PATCH [Suspect]
     Indication: HYPERTENSION
     Dosage: 1 PATCH 1 TIME TOP 1 TIME IN JUNE 03
     Route: 061

REACTIONS (6)
  - DYSKINESIA [None]
  - EYE MOVEMENT DISORDER [None]
  - GRAND MAL CONVULSION [None]
  - MUSCLE DISORDER [None]
  - OEDEMA PERIPHERAL [None]
  - PHOTOPSIA [None]
